FAERS Safety Report 12070069 (Version 1)
Quarter: 2016Q1

REPORT INFORMATION
  Report Type: Report from Study
  Country: CA (occurrence: CA)
  Receive Date: 20160211
  Receipt Date: 20160211
  Transmission Date: 20160526
  Serious: Yes (Hospitalization)
  Sender: FDA-Public Use
  Company Number: CA-MALLINCKRODT-T201600425

PATIENT
  Age: 57 Year
  Sex: Male
  Weight: 84 kg

DRUGS (8)
  1. REMICADE [Suspect]
     Active Substance: INFLIXIMAB
     Indication: CROHN^S DISEASE
     Dosage: 500 MG 1 IN 8 WEEKS
     Route: 042
     Dates: start: 20130223
  2. DOCUSATE SODIUM. [Concomitant]
     Active Substance: DOCUSATE SODIUM
     Dosage: 100 MG, BID
     Route: 048
  3. LAX-A-DAY [Concomitant]
     Dosage: 1 DF, PRN
     Route: 048
  4. MERCAPTOPURINE. [Concomitant]
     Active Substance: MERCAPTOPURINE
     Dosage: 75 MG, QD
     Route: 048
  5. SENOKOT [Concomitant]
     Active Substance: SENNOSIDES
     Dosage: 2 DF, QHS
     Route: 048
  6. TAMSULOSIN [Concomitant]
     Active Substance: TAMSULOSIN
     Dosage: 0.4 MG, QHS
     Route: 048
  7. HYDROMORPHONE [Suspect]
     Active Substance: HYDROMORPHONE
     Indication: PRODUCT USED FOR UNKNOWN INDICATION
     Dosage: 3 IN 1 DAY
     Route: 048
  8. GABAPENTIN. [Concomitant]
     Active Substance: GABAPENTIN
     Dosage: 600 MG, BID
     Route: 048

REACTIONS (4)
  - Intervertebral disc degeneration [Unknown]
  - Urinary retention [Unknown]
  - Delirium [Unknown]
  - Urosepsis [Unknown]

NARRATIVE: CASE EVENT DATE: 201509
